FAERS Safety Report 10506133 (Version 2)
Quarter: 2014Q4

REPORT INFORMATION
  Report Type: Report from Study
  Country: US (occurrence: US)
  Receive Date: 20141009
  Receipt Date: 20141110
  Transmission Date: 20150528
  Serious: Yes (Death, Hospitalization)
  Sender: FDA-Public Use
  Company Number: US-AMGEN-USASL2014076398

PATIENT
  Age: 66 Year
  Sex: Male
  Weight: 65.76 kg

DRUGS (1)
  1. XGEVA [Suspect]
     Active Substance: DENOSUMAB
     Indication: PRODUCT USED FOR UNKNOWN INDICATION
     Dosage: 120 MG, UNK, ONCE IN EVERY 28 DAYS
     Route: 058
     Dates: start: 20120123, end: 20130920

REACTIONS (5)
  - Prostate cancer metastatic [Fatal]
  - Acute kidney injury [Unknown]
  - Ureteric obstruction [Unknown]
  - Vomiting [Unknown]
  - Anaemia [Unknown]

NARRATIVE: CASE EVENT DATE: 2006
